FAERS Safety Report 8180334-8 (Version None)
Quarter: 2012Q1

REPORT INFORMATION
  Report Type: 
  Country: None (occurrence: None)
  Receive Date: 20120302
  Receipt Date: 20120228
  Transmission Date: 20120608
  Serious: Yes (Death, Hospitalization, Other)
  Sender: FDA-Public Use
  Company Number: DE-B.I. PHARMACEUTICALS,INC./RIDGEFIELD-2012-DE-00433DE

PATIENT
  Sex: Male

DRUGS (6)
  1. BISOPROLOL FUMARATE [Concomitant]
     Dosage: 5 MG
  2. RAMIPRIL [Concomitant]
     Dosage: 5 MG
  3. TORSEMIDE [Concomitant]
     Dosage: 40 MG
  4. PRADAXA [Suspect]
     Indication: ATRIAL FIBRILLATION
     Dosage: 220 MG
     Dates: start: 20110930, end: 20111018
  5. DIGITOXIN TAB [Concomitant]
     Dosage: 0.07 NR
  6. LANTRES [Concomitant]
     Dosage: 12/E/DAILY
     Route: 054

REACTIONS (5)
  - CARDIAC FAILURE [None]
  - ANAEMIA [None]
  - MELAENA [None]
  - RENAL FAILURE [None]
  - GASTROINTESTINAL HAEMORRHAGE [None]
